FAERS Safety Report 24170689 (Version 1)
Quarter: 2024Q3

REPORT INFORMATION
  Report Type: Spontaneous
  Country: US (occurrence: None)
  Receive Date: 20240802
  Receipt Date: 20240802
  Transmission Date: 20241017
  Serious: Yes (Other)
  Sender: Public
  Company Number: None

PATIENT
  Age: 69 Year
  Sex: Male
  Weight: 85.5 kg

DRUGS (7)
  1. AMIODARONE [Suspect]
     Active Substance: AMIODARONE
     Indication: Atrial fibrillation
     Dates: start: 20240609, end: 20240721
  2. XARELTO [Concomitant]
     Active Substance: RIVAROXABAN
  3. LISINOPRIL [Concomitant]
     Active Substance: LISINOPRIL
  4. CPAP DEVICE [Concomitant]
  5. VITAMINS [Concomitant]
     Active Substance: VITAMINS
  6. LAVENDER TABLETS [Concomitant]
  7. FISH OIL [Concomitant]
     Active Substance: FISH OIL

REACTIONS (3)
  - Feeling hot [None]
  - Eye irritation [None]
  - Therapy cessation [None]

NARRATIVE: CASE EVENT DATE: 20240715
